FAERS Safety Report 18453411 (Version 1)
Quarter: 2020Q4

REPORT INFORMATION
  Report Type: Spontaneous
  Country: US (occurrence: US)
  Receive Date: 20201102
  Receipt Date: 20201102
  Transmission Date: 20210114
  Serious: Yes (Life-Threatening, Hospitalization)
  Sender: FDA-Public Use
  Company Number: US-JNJFOC-20201037634

PATIENT
  Age: 62 Year
  Sex: Female

DRUGS (3)
  1. BUPROPION. [Concomitant]
     Active Substance: BUPROPION
  2. TRAZODONE [Suspect]
     Active Substance: TRAZODONE HYDROCHLORIDE
     Indication: PRODUCT USED FOR UNKNOWN INDICATION
     Route: 065
  3. ULTRAM [Suspect]
     Active Substance: TRAMADOL HYDROCHLORIDE
     Indication: BACK PAIN
     Route: 065

REACTIONS (2)
  - Serotonin syndrome [Recovering/Resolving]
  - Septic shock [Recovering/Resolving]
